FAERS Safety Report 12619421 (Version 4)
Quarter: 2020Q4

REPORT INFORMATION
  Report Type: Spontaneous
  Country: US (occurrence: US)
  Receive Date: 20160803
  Receipt Date: 20201006
  Transmission Date: 20210113
  Serious: Yes (Death, Hospitalization)
  Sender: FDA-Public Use
  Company Number: US-JNJFOC-20160724118

PATIENT
  Age: 76 Year
  Sex: Male

DRUGS (1)
  1. XARELTO [Suspect]
     Active Substance: RIVAROXABAN
     Indication: PULMONARY EMBOLISM
     Route: 048
     Dates: start: 20131019, end: 20131111

REACTIONS (3)
  - Lung cancer metastatic [Fatal]
  - Haemoptysis [Fatal]
  - Haematemesis [Unknown]

NARRATIVE: CASE EVENT DATE: 20131110
